FAERS Safety Report 4807315-3 (Version None)
Quarter: 2005Q4

REPORT INFORMATION
  Report Type: 
  Country: None (occurrence: None)
  Receive Date: 20051020
  Receipt Date: 20051020
  Transmission Date: 20060501
  Serious: Yes (Hospitalization)
  Sender: FDA-Public Use
  Company Number: None

PATIENT
  Age: 79 Year
  Sex: Male

DRUGS (9)
  1. WARFARIN [Suspect]
     Indication: DEEP VEIN THROMBOSIS
     Dosage: 7.5 MG QD
  2. TYLENOL (CAPLET) [Concomitant]
  3. LISINOPRIL [Concomitant]
  4. OMEPRAZOLE [Concomitant]
  5. COMBIVENT [Concomitant]
  6. TRAZODONE HCL [Concomitant]
  7. CARVIDILOL [Concomitant]
  8. GOSERELIN ACETATE IMPLANT [Concomitant]
  9. LASIX [Concomitant]

REACTIONS (4)
  - ANAEMIA [None]
  - DIZZINESS [None]
  - FATIGUE [None]
  - RECTAL HAEMORRHAGE [None]
